FAERS Safety Report 11552214 (Version 1)
Quarter: 2015Q3

REPORT INFORMATION
  Report Type: Spontaneous
  Country: US (occurrence: None)
  Receive Date: 20150924
  Receipt Date: 20150924
  Transmission Date: 20151125
  Serious: Yes (Disabling)
  Sender: FDA-Public Use
  Company Number: None

PATIENT
  Age: 66 Year
  Weight: 95.26 kg

DRUGS (7)
  1. HAWTHORN [Concomitant]
  2. LOSARTAN. [Concomitant]
     Active Substance: LOSARTAN
  3. SAW PALMETTO [Concomitant]
     Active Substance: SAW PALMETTO
  4. TUMERIC [Concomitant]
     Active Substance: TURMERIC
  5. VITS. A,B,C,D [Concomitant]
  6. CARDIA [Concomitant]
     Active Substance: AJMALINE
  7. GADAVIST [Suspect]
     Active Substance: GADOBUTROL

REACTIONS (8)
  - Thrombosis [None]
  - Injection site discolouration [None]
  - Vein disorder [None]
  - Pain [None]
  - Injection site swelling [None]
  - Fatigue [None]
  - Arthralgia [None]
  - Injection site erythema [None]

NARRATIVE: CASE EVENT DATE: 20150409
